FAERS Safety Report 5036992-X (Version None)
Quarter: 2006Q2

REPORT INFORMATION
  Report Type: 
  Country: None (occurrence: None)
  Receive Date: 20060613
  Receipt Date: 20060303
  Transmission Date: 20061013
  Serious: Yes (Other)
  Sender: FDA-Public Use
  Company Number: NSADSS2003022139

PATIENT
  Age: 37 Year
  Sex: Female
  Weight: 63.05 kg

DRUGS (5)
  1. ORTHO EVRA [Suspect]
     Indication: CONTRACEPTION
     Dosage: 1, 3 IN 4 WEEK, TRANSDERMAL
     Route: 062
  2. MVI (MULTIVITAMINS) [Concomitant]
  3. CALCIUM (CALCIUM) [Concomitant]
  4. ASCORBIC ACID [Concomitant]
  5. ANTIDEPRESSANT (ANTIDEPRESSANTS) [Concomitant]

REACTIONS (1)
  - CEREBROVASCULAR ACCIDENT [None]
